FAERS Safety Report 7305462-8 (Version None)
Quarter: 2011Q1

REPORT INFORMATION
  Report Type: 
  Country: None (occurrence: None)
  Receive Date: 20110222
  Receipt Date: 20110210
  Transmission Date: 20110831
  Serious: Yes (Other)
  Sender: FDA-Public Use
  Company Number: US-ELI_LILLY_AND_COMPANY-US201011004505

PATIENT
  Age: 74 Year
  Sex: Female

DRUGS (2)
  1. CALCIUM [Concomitant]
  2. FORTEO [Suspect]
     Indication: OSTEOPOROSIS
     Dosage: 20 UG, DAILY (1/D)
     Dates: start: 20100701

REACTIONS (4)
  - BLOOD CALCIUM INCREASED [None]
  - BONE DISORDER [None]
  - MUSCULOSKELETAL PAIN [None]
  - FRACTURE [None]
